FAERS Safety Report 20135998 (Version 1)
Quarter: 2021Q4

REPORT INFORMATION
  Report Type: Spontaneous
  Country: CL (occurrence: CL)
  Receive Date: 20211201
  Receipt Date: 20211201
  Transmission Date: 20220303
  Serious: Yes (Life-Threatening)
  Sender: FDA-Public Use
  Company Number: CL-FRESENIUS KABI-FK202113243

PATIENT
  Age: 36 Year
  Sex: Male

DRUGS (9)
  1. HALOPERIDOL LACTATE [Suspect]
     Active Substance: HALOPERIDOL LACTATE
     Indication: Delirium
     Route: 065
  2. CLONIDINE HYDROCHLORIDE [Suspect]
     Active Substance: CLONIDINE HYDROCHLORIDE
     Indication: Delirium
     Route: 065
  3. QUETIAPINE [Suspect]
     Active Substance: QUETIAPINE
     Indication: Delirium
     Route: 065
  4. RISPERIDONE [Suspect]
     Active Substance: RISPERIDONE
     Indication: Delirium
     Route: 065
  5. DEXMEDETOMIDINE [Concomitant]
     Active Substance: DEXMEDETOMIDINE
     Indication: Delirium
     Route: 065
  6. BISOPROLOL [Concomitant]
     Active Substance: BISOPROLOL
     Indication: Delirium
     Route: 065
  7. FENTANYL [Concomitant]
     Active Substance: FENTANYL
     Indication: Sedative therapy
     Route: 065
  8. MIDAZOLAM [Concomitant]
     Active Substance: MIDAZOLAM
     Indication: Sedative therapy
     Route: 065
  9. PROPOFOL [Concomitant]
     Active Substance: PROPOFOL
     Indication: Sedative therapy
     Route: 065

REACTIONS (1)
  - Malignant catatonia [Recovered/Resolved]
